FAERS Safety Report 11545252 (Version 1)
Quarter: 2015Q3

REPORT INFORMATION
  Report Type: Spontaneous
  Country: GB (occurrence: GB)
  Receive Date: 20150924
  Receipt Date: 20150924
  Transmission Date: 20151125
  Serious: Yes (Life-Threatening, Hospitalization)
  Sender: FDA-Public Use
  Company Number: GB-TEVA-594759ACC

PATIENT
  Age: 42 Year
  Sex: Female
  Weight: 95.25 kg

DRUGS (1)
  1. HALOPERIDOL DECANOATE. [Suspect]
     Active Substance: HALOPERIDOL DECANOATE
     Indication: SCHIZOAFFECTIVE DISORDER
     Dosage: VERY HIGH
     Route: 051
     Dates: start: 20110815, end: 20120910

REACTIONS (3)
  - Depression suicidal [Recovered/Resolved]
  - Akathisia [Recovered/Resolved]
  - Tardive dyskinesia [Recovered/Resolved]

NARRATIVE: CASE EVENT DATE: 20111201
